FAERS Safety Report 6804375-5 (Version None)
Quarter: 2010Q2

REPORT INFORMATION
  Report Type: 
  Country: None (occurrence: None)
  Receive Date: 20100628
  Receipt Date: 20070514
  Transmission Date: 20101027
  Serious: No
  Sender: FDA-Public Use
  Company Number: US-PFIZER INC-2007003817

PATIENT
  Age: 83 Year
  Sex: Female
  Weight: 73.03 kg

DRUGS (2)
  1. CADUET [Suspect]
     Indication: HYPERTENSION
     Dosage: 5/40MG DAILY
     Route: 048
     Dates: start: 20061208
  2. LIPITOR [Suspect]
     Indication: HYPERLIPIDAEMIA
     Route: 048

REACTIONS (2)
  - DYSPNOEA [None]
  - HYPERTENSION [None]
